FAERS Safety Report 5629957-8 (Version None)
Quarter: 2008Q1

REPORT INFORMATION
  Report Type: 
  Country: None (occurrence: None)
  Receive Date: 20080218
  Receipt Date: 20080207
  Transmission Date: 20080703
  Serious: Yes (Hospitalization)
  Sender: FDA-Public Use
  Company Number: FR-ROCHE-543889

PATIENT
  Age: 48 Year
  Sex: Male

DRUGS (9)
  1. COPEGUS [Suspect]
     Route: 048
     Dates: start: 20061001, end: 20070201
  2. VIRAFERON [Suspect]
     Route: 048
     Dates: start: 20061001, end: 20070201
  3. NOCTAMIDE [Concomitant]
     Dosage: THREE DOSES DAILY.
     Route: 048
  4. IMOVANE [Concomitant]
     Dosage: THREE DOSES DAILY.
     Route: 048
  5. LIPANTHYL [Concomitant]
     Dosage: ONE DOSE DAILY.
     Route: 048
  6. ATARAX [Concomitant]
     Dosage: ONE DOSE DAILY.
     Route: 048
  7. METHADONE HCL [Concomitant]
     Route: 042
  8. ACETAMINOPHEN [Concomitant]
  9. LASILIX [Concomitant]
     Dosage: TAKEN EVERY MORNING

REACTIONS (2)
  - DYSPNOEA EXERTIONAL [None]
  - PULMONARY INTERSTITIAL EMPHYSEMA SYNDROME [None]
